FAERS Safety Report 25863262 (Version 2)
Quarter: 2025Q4

REPORT INFORMATION
  Report Type: Spontaneous
  Country: LK (occurrence: LK)
  Receive Date: 20250930
  Receipt Date: 20251008
  Transmission Date: 20260118
  Serious: Yes (Life-Threatening, Hospitalization, Other)
  Sender: Haleon PLC
  Company Number: LK-002147023-NVSC2025LK149945

PATIENT
  Age: 29 Year
  Sex: Male

DRUGS (3)
  1. DICLOFENAC SODIUM [Suspect]
     Active Substance: DICLOFENAC SODIUM
     Indication: Abdominal pain
     Dosage: UNK
  2. TRAMADOL [Concomitant]
     Active Substance: TRAMADOL
     Indication: Abdominal pain
     Dosage: UNK
  3. ACETAMINOPHEN [Concomitant]
     Active Substance: ACETAMINOPHEN
     Indication: Abdominal pain
     Dosage: UNK

REACTIONS (9)
  - Acute hepatic failure [Recovering/Resolving]
  - Altered state of consciousness [Recovering/Resolving]
  - Puncture site haemorrhage [Recovering/Resolving]
  - Rash maculo-papular [Recovering/Resolving]
  - Retroperitoneal haematoma [Recovering/Resolving]
  - Acute kidney injury [Recovering/Resolving]
  - Disseminated intravascular coagulation [Recovering/Resolving]
  - Haemorrhagic varicella syndrome [Recovering/Resolving]
  - Gastric ulcer haemorrhage [Recovering/Resolving]
